FAERS Safety Report 4433728-8 (Version None)
Quarter: 2004Q3

REPORT INFORMATION
  Report Type: 
  Country: None (occurrence: None)
  Receive Date: 20040826
  Receipt Date: 20040820
  Transmission Date: 20050211
  Serious: Yes (Hospitalization)
  Sender: FDA-Public Use
  Company Number: CH-MERCK-0408CHE00027

PATIENT
  Age: 88 Year
  Sex: Female
  Weight: 66 kg

DRUGS (5)
  1. ALLOPURINOL [Concomitant]
     Route: 048
  2. ASPIRIN [Concomitant]
     Route: 048
  3. CANDESARTAN CILEXETIL [Concomitant]
     Route: 048
  4. NOROXIN [Suspect]
     Route: 048
     Dates: start: 20040322, end: 20040325
  5. VERAPAMIL HYDROCHLORIDE [Concomitant]
     Route: 048

REACTIONS (3)
  - HAEMATURIA [None]
  - LEUKOCYTOCLASTIC VASCULITIS [None]
  - PROTEINURIA [None]
